FAERS Safety Report 5257056-6 (Version None)
Quarter: 2007Q1

REPORT INFORMATION
  Report Type: 
  Country: None (occurrence: None)
  Receive Date: 20070307
  Receipt Date: 20070224
  Transmission Date: 20070707
  Serious: Yes (Other)
  Sender: FDA-Public Use
  Company Number: US-PFIZER INC-2007016797

PATIENT
  Sex: Female
  Weight: 71.7 kg

DRUGS (25)
  1. NICOTINE [Suspect]
  2. CHANTIX [Suspect]
     Indication: SMOKING CESSATION THERAPY
     Dates: start: 20070210
  3. ULTRAM [Concomitant]
  4. ELAVIL [Concomitant]
  5. SEROQUEL [Concomitant]
  6. DARVOCET [Concomitant]
  7. ACTONEL [Concomitant]
  8. BETIMOL [Concomitant]
  9. XALATAN [Concomitant]
  10. PRED FORTE [Concomitant]
  11. ALL OTHER THERAPEUTIC PRODUCTS [Concomitant]
  12. VISINE EYE DROPS [Concomitant]
  13. VITAMIN CAP [Concomitant]
  14. COLESTID [Concomitant]
  15. TRICOR [Concomitant]
  16. PREMARIN [Concomitant]
  17. ACETYLSALICYLIC ACID SRT [Concomitant]
  18. ZYRTEC [Concomitant]
  19. XANAX - SLOW RELEASE [Concomitant]
  20. BENADRYL [Concomitant]
  21. NEXIUM [Concomitant]
  22. LEXAPRO [Concomitant]
  23. EFFEXOR XR [Concomitant]
  24. HERBAL PREPARATION [Concomitant]
  25. VITAMINS [Concomitant]

REACTIONS (7)
  - BRONCHIAL OEDEMA [None]
  - DEVICE FAILURE [None]
  - HEAD DISCOMFORT [None]
  - JOINT INJURY [None]
  - NECK INJURY [None]
  - ROTATOR CUFF SYNDROME [None]
  - TRACHEAL OEDEMA [None]
